FAERS Safety Report 17747408 (Version 3)
Quarter: 2020Q3

REPORT INFORMATION
  Report Type: Spontaneous
  Country: US (occurrence: US)
  Receive Date: 20200505
  Receipt Date: 20200813
  Transmission Date: 20201102
  Serious: Yes (Other)
  Sender: FDA-Public Use
  Company Number: US-BAYER-2020-070652

PATIENT
  Age: 55 Year
  Sex: Male

DRUGS (3)
  1. JIVI [Suspect]
     Active Substance: DAMOCTOCOG ALFA PEGOL
     Indication: PROPHYLAXIS
     Dosage: 4000 U PROPHYLAXIS FOR RIGHT ANKLE BLEED
     Route: 042
     Dates: start: 20200730, end: 20200730
  2. JIVI [Suspect]
     Active Substance: DAMOCTOCOG ALFA PEGOL
     Indication: PROPHYLAXIS
     Dosage: 4244 U, ONCE, USED 1 EXTRA DOSE TO TREAT BLEED
     Route: 042
     Dates: start: 20200402, end: 20200402
  3. JIVI [Suspect]
     Active Substance: DAMOCTOCOG ALFA PEGOL
     Indication: PROPHYLAXIS
     Dosage: DOSE AND ROUTE PRESCRIBED: 4244 IU
     Route: 042

REACTIONS (2)
  - Haemarthrosis [None]
  - Haemarthrosis [Recovered/Resolved]

NARRATIVE: CASE EVENT DATE: 20200402
